FAERS Safety Report 7322493-2 (Version None)
Quarter: 2011Q1

REPORT INFORMATION
  Report Type: 
  Country: None (occurrence: None)
  Receive Date: 20110301
  Receipt Date: 20100908
  Transmission Date: 20110831
  Serious: Yes (Hospitalization, Other)
  Sender: FDA-Public Use
  Company Number: US-BAYER-201019733NA

PATIENT
  Sex: Female
  Weight: 89.796 kg

DRUGS (14)
  1. CLINDAMYCIN [Concomitant]
     Dosage: 150 MG, UNK
     Route: 048
  2. PREVACID [Concomitant]
     Dosage: 30 MG, UNK
     Route: 048
  3. IBUPROFEN [Concomitant]
     Dosage: 800 MG, UNK
     Route: 048
  4. ERY-TAB [Concomitant]
     Dosage: 333 MG, UNK
     Route: 048
  5. YAZ [Suspect]
     Indication: CONTRACEPTION
     Dosage: UNK
     Route: 048
     Dates: start: 20071201, end: 20080601
  6. LOVENOX [Concomitant]
  7. PROTONIX [Concomitant]
     Dosage: 40 MG, UNK
     Route: 048
  8. WARFARIN [Concomitant]
     Dosage: 5 MG, UNK
     Route: 048
  9. OXYCODONE HCL AND ACETAMINOPHEN [Concomitant]
     Route: 048
  10. LEVAQUIN [Concomitant]
     Dosage: 500 MG, UNK
     Route: 048
  11. METHOCARBAMOL [Concomitant]
     Dosage: 500 MG, UNK
     Route: 048
  12. MERIDIA [Concomitant]
     Dosage: 10 MG, UNK
     Route: 048
  13. YASMIN [Suspect]
     Indication: PRODUCT USED FOR UNKNOWN INDICATION
     Route: 048
  14. AZITHROMYCIN [Concomitant]
     Dosage: 250 MG, UNK
     Route: 048

REACTIONS (9)
  - DYSPNOEA [None]
  - PNEUMONIA [None]
  - CHEST PAIN [None]
  - THROMBOSIS [None]
  - HAEMOPTYSIS [None]
  - PULMONARY EMBOLISM [None]
  - BACK PAIN [None]
  - COUGH [None]
  - PULMONARY INFARCTION [None]
